FAERS Safety Report 9231870 (Version 1)
Quarter: 2013Q2

REPORT INFORMATION
  Report Type: Spontaneous
  Country: US (occurrence: US)
  Receive Date: 20130415
  Receipt Date: 20130415
  Transmission Date: 20140414
  Serious: Yes (Other)
  Sender: FDA-Public Use
  Company Number: US-ACTAVIS-2013-05946

PATIENT
  Age: 35 Year
  Sex: Female

DRUGS (1)
  1. BUPRENORPHINE-NALOXONE (AELLC) [Suspect]
     Indication: DRUG DEPENDENCE
     Dosage: 8 MG, BID
     Route: 065

REACTIONS (1)
  - Dental caries [Unknown]
